FAERS Safety Report 11705075 (Version 2)
Quarter: 2015Q4

REPORT INFORMATION
  Report Type: Spontaneous
  Country: JP (occurrence: JP)
  Receive Date: 20151106
  Receipt Date: 20151214
  Transmission Date: 20160304
  Serious: Yes (Life-Threatening, Other)
  Sender: FDA-Public Use
  Company Number: JP-BAXTER-2015BAX026550

PATIENT
  Age: 57 Year
  Sex: Male

DRUGS (8)
  1. CYMERIN [Suspect]
     Active Substance: RANIMUSTINE
     Indication: DIFFUSE LARGE B-CELL LYMPHOMA
     Route: 042
     Dates: start: 20150422, end: 20150427
  2. CARBOPLATIN. [Suspect]
     Active Substance: CARBOPLATIN
     Indication: DIFFUSE LARGE B-CELL LYMPHOMA
     Route: 042
     Dates: start: 20150423, end: 20150426
  3. ENDOXAN 1G [Suspect]
     Active Substance: CYCLOPHOSPHAMIDE
     Indication: DIFFUSE LARGE B-CELL LYMPHOMA
     Route: 042
     Dates: start: 20150427, end: 20150428
  4. PLATELET TRANSFUSION [Concomitant]
     Indication: PRODUCT USED FOR UNKNOWN INDICATION
     Dosage: TRANSFUSION
     Route: 065
     Dates: start: 20150501, end: 20150624
  5. ENDOXAN 1G [Suspect]
     Active Substance: CYCLOPHOSPHAMIDE
     Indication: BONE MARROW CONDITIONING REGIMEN
  6. CELLTOP 100 MG/5 ML, SOLUTION INJECTABLE POUR PERFUSION [Suspect]
     Active Substance: ETOPOSIDE
     Indication: DIFFUSE LARGE B-CELL LYMPHOMA
     Route: 042
     Dates: start: 20150424, end: 20150426
  7. CARPERITIDE [Suspect]
     Active Substance: CARPERITIDE
     Indication: CARDIAC FAILURE ACUTE
     Route: 065
     Dates: start: 20150507, end: 20150512
  8. PACKED RED BLOOD CELLS [Concomitant]
     Active Substance: HUMAN RED BLOOD CELL
     Indication: PRODUCT USED FOR UNKNOWN INDICATION
     Dosage: TRANSFUSION
     Route: 065
     Dates: start: 20150501, end: 20150624

REACTIONS (5)
  - Blood pressure decreased [Unknown]
  - Cardiac failure chronic [Unknown]
  - Anuria [Unknown]
  - Pulmonary oedema [Unknown]
  - Cardiac failure acute [Recovering/Resolving]

NARRATIVE: CASE EVENT DATE: 20150507
